FAERS Safety Report 23122280 (Version 1)
Quarter: 2023Q4

REPORT INFORMATION
  Report Type: Spontaneous
  Country: US (occurrence: US)
  Receive Date: 20231030
  Receipt Date: 20231030
  Transmission Date: 20240110
  Serious: No
  Sender: FDA-Public Use
  Company Number: US-SUN PHARMACEUTICAL INDUSTRIES LTD-2023R1-395471

PATIENT
  Age: 72 Year
  Sex: Female

DRUGS (2)
  1. XELPROS [Suspect]
     Active Substance: LATANOPROST
     Indication: Glaucoma
     Dosage: UNK
     Route: 065
     Dates: start: 20220711
  2. XELPROS [Suspect]
     Active Substance: LATANOPROST
     Indication: Meibomian gland dysfunction

REACTIONS (3)
  - Burning sensation [Unknown]
  - Ocular hyperaemia [Unknown]
  - Eye pruritus [Unknown]

NARRATIVE: CASE EVENT DATE: 20230605
